FAERS Safety Report 6734698-X (Version None)
Quarter: 2010Q2

REPORT INFORMATION
  Report Type: 
  Country: None (occurrence: None)
  Receive Date: 20100519
  Receipt Date: 20100519
  Transmission Date: 20101027
  Serious: Yes (Disabling, Other)
  Sender: FDA-Public Use
  Company Number: None

PATIENT
  Age: 25 Year
  Sex: Male
  Weight: 52.1637 kg

DRUGS (1)
  1. SUBOXONE [Suspect]
     Indication: DRUG WITHDRAWAL SYNDROME
     Dosage: 1 TABLET 3 TIMES A DAY SL
     Route: 060
     Dates: start: 20090706, end: 20100514

REACTIONS (2)
  - DRUG WITHDRAWAL SYNDROME [None]
  - WEIGHT DECREASED [None]
